FAERS Safety Report 6029812-8 (Version None)
Quarter: 2009Q1

REPORT INFORMATION
  Report Type: 
  Country: None (occurrence: None)
  Receive Date: 20090106
  Receipt Date: 20090106
  Transmission Date: 20090719
  Serious: Yes (Hospitalization)
  Sender: FDA-Public Use
  Company Number: None

PATIENT
  Sex: Female
  Weight: 22 kg

DRUGS (2)
  1. PRIVIGEN [Suspect]
     Indication: HYPOGAMMAGLOBULINAEMIA
     Dosage: 15 G IV Q 4 WKS
     Route: 042
     Dates: start: 20081231
  2. PRIVIGEN [Suspect]

REACTIONS (4)
  - INFUSION RELATED REACTION [None]
  - PAIN [None]
  - PRURITUS [None]
  - URTICARIA [None]
